FAERS Safety Report 5469356-5 (Version None)
Quarter: 2007Q3

REPORT INFORMATION
  Report Type: 
  Country: None (occurrence: None)
  Receive Date: 20070924
  Receipt Date: 20070912
  Transmission Date: 20080115
  Serious: No
  Sender: FDA-Public Use
  Company Number: 2007-164184-NL

PATIENT
  Age: 21 Year
  Sex: Female

DRUGS (1)
  1. DESOGEN [Suspect]
     Indication: CONTRACEPTION
     Dosage: DF;

REACTIONS (4)
  - DYSGEUSIA [None]
  - HYPOAESTHESIA [None]
  - PARAESTHESIA [None]
  - VISION BLURRED [None]
